FAERS Safety Report 7495509-0 (Version None)
Quarter: 2011Q2

REPORT INFORMATION
  Report Type: 
  Country: None (occurrence: None)
  Receive Date: 20110523
  Receipt Date: 20110510
  Transmission Date: 20111010
  Serious: Yes (Hospitalization)
  Sender: FDA-Public Use
  Company Number: DE-RANBAXY-2011RR-44510

PATIENT
  Age: 42 Year
  Sex: Male
  Weight: 100 kg

DRUGS (6)
  1. RAMIPRIL [Suspect]
     Indication: ACUTE MYOCARDIAL INFARCTION
     Dosage: 5 MG, BID
     Route: 048
     Dates: start: 20110325, end: 20110418
  2. ACETAMINOPHEN [Suspect]
     Indication: PAIN
     Dosage: 500 MG, BID
     Route: 048
     Dates: start: 20110414, end: 20110417
  3. PALVIX 75MG FILMTABLETTEN [Concomitant]
     Indication: STENT PLACEMENT
     Dosage: 75 MG, QD
     Route: 048
     Dates: start: 20110325
  4. ASS 100 [Concomitant]
     Indication: STENT PLACEMENT
     Dosage: 100 MG, QD
     Route: 048
     Dates: start: 20110325
  5. SIMVASTATIN [Suspect]
     Indication: ACUTE MYOCARDIAL INFARCTION
     Dosage: 40 MG, QD
     Route: 048
     Dates: start: 20110325, end: 20110415
  6. METOPROLOL SUCCINATE [Concomitant]
     Indication: ACUTE MYOCARDIAL INFARCTION
     Dosage: 47.5 MG, QD
     Route: 048
     Dates: start: 20110325

REACTIONS (1)
  - ACUTE HEPATIC FAILURE [None]
